FAERS Safety Report 19824302 (Version 3)
Quarter: 2021Q4

REPORT INFORMATION
  Report Type: Spontaneous
  Country: US (occurrence: US)
  Receive Date: 20210913
  Receipt Date: 20211006
  Transmission Date: 20220303
  Serious: No
  Sender: FDA-Public Use
  Company Number: US-ORGANON-O2109USA000479

PATIENT
  Age: 37 Year
  Sex: Female
  Weight: 68.48 kg

DRUGS (1)
  1. NUVARING [Suspect]
     Active Substance: ETHINYL ESTRADIOL\ETONOGESTREL
     Indication: Contraception
     Dosage: 1 RING; 1 EVERY 3 WEEKS, STRENGTH WAS REPORTED AS 0.012/0.015 MILLIGRAM
     Route: 067
     Dates: start: 20201019, end: 20210908

REACTIONS (3)
  - Device expulsion [Unknown]
  - Device physical property issue [Unknown]
  - No adverse event [Unknown]

NARRATIVE: CASE EVENT DATE: 20210908
